FAERS Safety Report 23806724 (Version 3)
Quarter: 2024Q3

REPORT INFORMATION
  Report Type: Report from Study
  Country: AR (occurrence: AR)
  Receive Date: 20240502
  Receipt Date: 20240710
  Transmission Date: 20241017
  Serious: Yes (Other)
  Sender: NOVARTIS
  Company Number: AR-002147023-NVSC2024AR092582

PATIENT
  Sex: Female

DRUGS (1)
  1. COSENTYX [Suspect]
     Active Substance: SECUKINUMAB
     Indication: Psoriatic arthropathy
     Dosage: 300 MG, QMO (STOPPED IN FEB)
     Route: 058
     Dates: start: 20210128

REACTIONS (6)
  - Pneumonia [Unknown]
  - Psoriatic arthropathy [Unknown]
  - Pain [Unknown]
  - Arthritis [Unknown]
  - Cellulitis [Unknown]
  - Abscess oral [Unknown]
